FAERS Safety Report 12261385 (Version 4)
Quarter: 2016Q3

REPORT INFORMATION
  Report Type: Report from Study
  Country: US (occurrence: US)
  Receive Date: 20160412
  Receipt Date: 20160803
  Transmission Date: 20161109
  Serious: Yes (Other)
  Sender: FDA-Public Use
  Company Number: US-GILEAD-2016-0205116

PATIENT
  Age: 88 Year
  Sex: Female
  Weight: 55.33 kg

DRUGS (13)
  1. MEGACE [Concomitant]
     Active Substance: MEGESTROL ACETATE
     Dosage: UNK
     Dates: start: 20140821
  2. ONDANSETRON [Concomitant]
     Active Substance: ONDANSETRON
     Dosage: UNK
     Dates: start: 20160119
  3. PEPCID AC [Concomitant]
     Active Substance: FAMOTIDINE
     Dosage: UNK
     Dates: start: 20150630
  4. LIDOCAINE. [Concomitant]
     Active Substance: LIDOCAINE
     Indication: HERPES ZOSTER
     Dosage: UNK
     Dates: start: 201212
  5. LISINOPRIL. [Concomitant]
     Active Substance: LISINOPRIL
  6. OCTAGAM IMMUNE GLOBULIN (HUMAN) [Concomitant]
     Active Substance: HUMAN IMMUNOGLOBULIN G
     Dosage: UNK
     Dates: start: 20150602
  7. MIRALAX [Concomitant]
     Active Substance: POLYETHYLENE GLYCOL 3350
     Dosage: UNK
     Dates: start: 20140826
  8. IDELALISIB [Suspect]
     Active Substance: IDELALISIB
     Indication: NON-HODGKIN^S LYMPHOMA
     Dosage: 100 MG, BID
     Route: 048
     Dates: start: 20150602, end: 2016
  9. IDELALISIB [Suspect]
     Active Substance: IDELALISIB
     Indication: B-CELL LYMPHOMA
  10. RITUXAN [Concomitant]
     Active Substance: RITUXIMAB
     Indication: NON-HODGKIN^S LYMPHOMA
     Route: 042
  11. PRESERVISION LUTEIN [Concomitant]
     Active Substance: MINERALS\VITAMINS
     Dosage: UNK
     Dates: start: 20140630
  12. ALLOPURINOL. [Concomitant]
     Active Substance: ALLOPURINOL
  13. ACICLOVIR [Concomitant]
     Active Substance: ACYCLOVIR
     Indication: HERPES ZOSTER
     Dosage: UNK
     Dates: start: 201512

REACTIONS (15)
  - Dehydration [Unknown]
  - Decreased appetite [Not Recovered/Not Resolved]
  - Herpes zoster [Recovering/Resolving]
  - Feeling abnormal [Unknown]
  - Fatigue [Not Recovered/Not Resolved]
  - Urinary tract infection [Recovered/Resolved]
  - Defaecation urgency [Unknown]
  - Malignant melanoma [Unknown]
  - Pancytopenia [Unknown]
  - Drug dose omission [Unknown]
  - Bladder discomfort [Unknown]
  - Urinary tract infection [Unknown]
  - Blood immunoglobulin G decreased [Recovered/Resolved]
  - Nausea [Recovered/Resolved]
  - Diarrhoea [Recovered/Resolved]

NARRATIVE: CASE EVENT DATE: 20150602
